FAERS Safety Report 9708219 (Version 2)
Quarter: 2013Q4

REPORT INFORMATION
  Report Type: Spontaneous
  Country: CA (occurrence: CA)
  Receive Date: 20131125
  Receipt Date: 20131205
  Transmission Date: 20140711
  Serious: Yes (Other)
  Sender: FDA-Public Use
  Company Number: CA-GLAXOSMITHKLINE-A1050654A

PATIENT
  Age: 76 Year
  Sex: Female
  Weight: 63.5 kg

DRUGS (2)
  1. NICORETTE 2 MG [Suspect]
     Indication: SMOKING CESSATION THERAPY
     Route: 048
     Dates: end: 20131114
  2. NICODERM CQ CLEAR 21MG [Concomitant]
     Indication: SMOKING CESSATION THERAPY
     Route: 061
     Dates: start: 20131109

REACTIONS (2)
  - Nightmare [Recovered/Resolved]
  - Dizziness [Not Recovered/Not Resolved]
